FAERS Safety Report 14004976 (Version 1)
Quarter: 2017Q3

REPORT INFORMATION
  Report Type: Spontaneous
  Country: US (occurrence: US)
  Receive Date: 20170922
  Receipt Date: 20170922
  Transmission Date: 20171128
  Serious: Yes (Hospitalization, Other)
  Sender: FDA-Public Use
  Company Number: US-WEST-WARD PHARMACEUTICALS CORP.-US-H14001-17-03567

PATIENT
  Age: 40 Year
  Sex: Female

DRUGS (13)
  1. RIFABUTIN. [Concomitant]
     Active Substance: RIFABUTIN
     Indication: TUBERCULOSIS OF GENITOURINARY SYSTEM
     Route: 065
  2. EMTRICITABINE/TENOFOVIR DISOPROXIL FUMARATE [Concomitant]
     Active Substance: EMTRICITABINE\TENOFOVIR DISOPROXIL FUMARATE
     Indication: HIV TEST POSITIVE
     Route: 065
  3. ISONIAZID. [Suspect]
     Active Substance: ISONIAZID
     Indication: TUBERCULOSIS OF GENITOURINARY SYSTEM
     Route: 065
  4. PYRAZINAMIDE. [Concomitant]
     Active Substance: PYRAZINAMIDE
     Indication: TUBERCULOSIS OF GENITOURINARY SYSTEM
     Route: 065
  5. PHENAZOPYRIDINE. [Concomitant]
     Active Substance: PHENAZOPYRIDINE
     Indication: PYURIA
     Route: 065
  6. CEFTRIAXONE. [Suspect]
     Active Substance: CEFTRIAXONE
     Indication: HAEMATURIA
  7. NITROFURANTOIN. [Concomitant]
     Active Substance: NITROFURANTOIN
     Indication: HAEMATURIA
  8. LEVOFLOXACIN. [Concomitant]
     Active Substance: LEVOFLOXACIN
     Indication: TUBERCULOSIS OF GENITOURINARY SYSTEM
     Route: 065
  9. RALTEGRAVIR. [Concomitant]
     Active Substance: RALTEGRAVIR
     Indication: TUBERCULOSIS OF GENITOURINARY SYSTEM
     Route: 065
  10. CEFTRIAXONE. [Suspect]
     Active Substance: CEFTRIAXONE
     Indication: PYURIA
     Route: 065
  11. ETHAMBUTOL [Concomitant]
     Active Substance: ETHAMBUTOL HYDROCHLORIDE
     Indication: TUBERCULOSIS OF GENITOURINARY SYSTEM
     Route: 065
  12. NITROFURANTOIN. [Concomitant]
     Active Substance: NITROFURANTOIN
     Indication: PYURIA
     Route: 065
  13. PHENAZOPYRIDINE. [Concomitant]
     Active Substance: PHENAZOPYRIDINE
     Indication: HAEMATURIA

REACTIONS (3)
  - Acute hepatic failure [Recovered/Resolved]
  - Exposure during pregnancy [Recovered/Resolved]
  - Drug reaction with eosinophilia and systemic symptoms [Recovered/Resolved]
